FAERS Safety Report 7129218-4 (Version None)
Quarter: 2010Q4

REPORT INFORMATION
  Report Type: 
  Country: None (occurrence: None)
  Receive Date: 20101116
  Receipt Date: 20101108
  Transmission Date: 20110411
  Serious: Yes (Other)
  Sender: FDA-Public Use
  Company Number: WAES 1011USA00963

PATIENT
  Age: 54 Year
  Sex: Female
  Weight: 92.9874 kg

DRUGS (6)
  1. PRINIVIL [Suspect]
     Dosage: PO
     Route: 048
  2. COGENTIN [Suspect]
     Indication: ANXIETY
     Dosage: PO
     Route: 048
  3. CHANTIX [Suspect]
     Indication: SMOKING CESSATION THERAPY
     Dosage: 0.5 MG/DAILY/PO, 1 MG/BID/PO
     Route: 048
     Dates: start: 20100927, end: 20100101
  4. CHANTIX [Suspect]
     Indication: SMOKING CESSATION THERAPY
     Dosage: 0.5 MG/DAILY/PO, 1 MG/BID/PO
     Route: 048
     Dates: start: 20100101
  5. METFORMIN HCL [Suspect]
     Indication: DIABETES MELLITUS
  6. TRICOR (MICRONIZED) [Suspect]

REACTIONS (7)
  - BIPOLAR DISORDER [None]
  - CONDITION AGGRAVATED [None]
  - DEPRESSION [None]
  - DRUG INEFFECTIVE [None]
  - DRUG INTERACTION [None]
  - HALLUCINATION [None]
  - INSOMNIA [None]
